FAERS Safety Report 26102010 (Version 1)
Quarter: 2025Q4

REPORT INFORMATION
  Report Type: Spontaneous
  Country: EU (occurrence: EU)
  Receive Date: 20251128
  Receipt Date: 20251128
  Transmission Date: 20260118
  Serious: Yes (Other)
  Sender: TEVA
  Company Number: None

PATIENT
  Age: 42 Year
  Sex: Female

DRUGS (2)
  1. OLANZAPINE [Suspect]
     Active Substance: OLANZAPINE
     Indication: Product used for unknown indication
     Route: 048
     Dates: start: 20250908, end: 20250908
  2. VALPROATE SODIUM [Suspect]
     Active Substance: VALPROATE SODIUM
     Indication: Product used for unknown indication
     Dosage: 1 DF = 145 MG VALPROIC ACID AND 333 MG SODIUM VALPROATE
     Route: 048
     Dates: start: 20250908, end: 20250908

REACTIONS (5)
  - Suicide attempt [Unknown]
  - Somnolence [Unknown]
  - Agitation [Unknown]
  - Intentional overdose [Unknown]
  - Miosis [Unknown]

NARRATIVE: CASE EVENT DATE: 20250908
